FAERS Safety Report 6009915-4 (Version None)
Quarter: 2008Q4

REPORT INFORMATION
  Report Type: 
  Country: None (occurrence: None)
  Receive Date: 20081217
  Receipt Date: 20081217
  Transmission Date: 20090506
  Serious: Yes (Hospitalization)
  Sender: FDA-Public Use
  Company Number: None

PATIENT
  Age: 79 Year
  Sex: Male

DRUGS (1)
  1. FERROUS GLUCONATE [Suspect]
     Dosage: 125 MG ONCE IV
     Route: 042
     Dates: start: 20081126

REACTIONS (1)
  - SYNCOPE [None]
